FAERS Safety Report 6081231-4 (Version None)
Quarter: 2009Q1

REPORT INFORMATION
  Report Type: 
  Country: None (occurrence: None)
  Receive Date: 20090121
  Receipt Date: 20080320
  Transmission Date: 20090719
  Serious: Yes (Other)
  Sender: FDA-Public Use
  Company Number: HQWYE092509AUG04

PATIENT
  Age: 54 Year
  Sex: Female

DRUGS (4)
  1. PREMPRO [Suspect]
     Indication: MENOPAUSE
     Dosage: ORAL
     Route: 048
     Dates: start: 20010101, end: 20030101
  2. PREMPRO [Suspect]
     Indication: PREMENSTRUAL SYNDROME
     Dosage: ORAL
     Route: 048
     Dates: start: 20010101, end: 20030101
  3. CYCRIN [Suspect]
  4. PREMARIN [Suspect]

REACTIONS (1)
  - OVARIAN CANCER [None]
